FAERS Safety Report 9199559 (Version 1)
Quarter: 2013Q1

REPORT INFORMATION
  Report Type: Spontaneous
  Country: US (occurrence: US)
  Receive Date: 20130329
  Receipt Date: 20130329
  Transmission Date: 20140127
  Serious: No
  Sender: FDA-Public Use
  Company Number: US-GLAXOSMITHKLINE-A1005561A

PATIENT
  Age: 21 Year
  Sex: Female

DRUGS (1)
  1. BENLYSTA [Suspect]

REACTIONS (1)
  - Infection [Unknown]
